FAERS Safety Report 14368758 (Version 2)
Quarter: 2018Q1

REPORT INFORMATION
  Report Type: Spontaneous
  Country: US (occurrence: US)
  Receive Date: 20180109
  Receipt Date: 20180222
  Transmission Date: 20180509
  Serious: Yes (Other)
  Sender: FDA-Public Use
  Company Number: US-009507513-1801USA001782

PATIENT
  Age: 39 Year
  Sex: Female
  Weight: 68.03 kg

DRUGS (2)
  1. BELSOMRA [Suspect]
     Active Substance: SUVOREXANT
     Indication: INSOMNIA
     Dosage: UNK
     Route: 048
     Dates: start: 201704
  2. LEVOTHYROXINE SODIUM. [Concomitant]
     Active Substance: LEVOTHYROXINE SODIUM
     Route: 048

REACTIONS (4)
  - Nephrolithiasis [Not Recovered/Not Resolved]
  - Drug effect incomplete [Unknown]
  - Disorientation [Not Recovered/Not Resolved]
  - Somnolence [Not Recovered/Not Resolved]
